FAERS Safety Report 6168881-1 (Version None)
Quarter: 2009Q2

REPORT INFORMATION
  Report Type: 
  Country: None (occurrence: None)
  Receive Date: 20090424
  Receipt Date: 20090424
  Transmission Date: 20091009
  Serious: Yes (Hospitalization)
  Sender: FDA-Public Use
  Company Number: None

PATIENT
  Age: 18 Year
  Sex: Male

DRUGS (4)
  1. METOCLOPRAMIDE [Suspect]
     Indication: NAUSEA
     Dosage: METOCLOPRAMIDE 10 MG INJ Q6H IV
     Route: 042
     Dates: start: 20080325, end: 20080330
  2. METOCLOPRAMIDE [Suspect]
     Indication: VOMITING
     Dosage: METOCLOPRAMIDE 10 MG INJ Q6H IV
     Route: 042
     Dates: start: 20080325, end: 20080330
  3. METOCLOPRAMIDE [Suspect]
     Indication: NAUSEA
     Dosage: METOCLOPRAMIDE 10 MG INJ Q6H IV
     Route: 042
     Dates: start: 20080330, end: 20080402
  4. METOCLOPRAMIDE [Suspect]
     Indication: VOMITING
     Dosage: METOCLOPRAMIDE 10 MG INJ Q6H IV
     Route: 042
     Dates: start: 20080330, end: 20080402

REACTIONS (8)
  - CONSTIPATION [None]
  - DYSKINESIA [None]
  - FALL [None]
  - HEAD INJURY [None]
  - HYPERTENSION [None]
  - NERVOUS SYSTEM DISORDER [None]
  - TACHYCARDIA [None]
  - TREMOR [None]
